FAERS Safety Report 7174619-1 (Version None)
Quarter: 2010Q4

REPORT INFORMATION
  Report Type: 
  Country: None (occurrence: None)
  Receive Date: 20101219
  Receipt Date: 20100404
  Transmission Date: 20110411
  Serious: No
  Sender: FDA-Public Use
  Company Number: US-AMGEN-KDL403766

PATIENT

DRUGS (3)
  1. ENBREL [Suspect]
     Indication: PSORIATIC ARTHROPATHY
     Dosage: 50 MG, QWK
     Route: 058
     Dates: start: 20090801
  2. ENBREL [Suspect]
     Indication: PSORIASIS
  3. UNSPECIFIED ANTIBIOTIC [Concomitant]

REACTIONS (1)
  - TOOTH INFECTION [None]
